FAERS Safety Report 25716919 (Version 1)
Quarter: 2025Q3

REPORT INFORMATION
  Report Type: Spontaneous
  Country: US (occurrence: None)
  Receive Date: 20250821
  Receipt Date: 20250821
  Transmission Date: 20251021
  Serious: No
  Sender: FDA-CTU
  Company Number: None

PATIENT
  Age: 72 Year
  Sex: Female

DRUGS (1)
  1. ZETIA [Suspect]
     Active Substance: EZETIMIBE
     Dosage: FREQUENCY : DAILY;?
     Route: 048
     Dates: start: 20250801, end: 20250803

REACTIONS (2)
  - Muscle spasms [None]
  - Gait inability [None]

NARRATIVE: CASE EVENT DATE: 20250802
